FAERS Safety Report 7130757-0 (Version None)
Quarter: 2010Q4

REPORT INFORMATION
  Report Type: 
  Country: None (occurrence: None)
  Receive Date: 20101201
  Receipt Date: 20101123
  Transmission Date: 20110411
  Serious: Yes (Hospitalization)
  Sender: FDA-Public Use
  Company Number: ES-CELGENEUS-144-50794-10112754

PATIENT
  Sex: Male

DRUGS (4)
  1. VIDAZA [Suspect]
     Route: 050
     Dates: start: 20100101
  2. ANTIBIOTICS [Concomitant]
     Route: 065
  3. ANTIINFLAMMATORY AGENTS [Concomitant]
     Route: 065
  4. ANALGESICS [Concomitant]
     Route: 065

REACTIONS (1)
  - ERYTHEMA MULTIFORME [None]
